FAERS Safety Report 16384921 (Version 1)
Quarter: 2019Q2

REPORT INFORMATION
  Report Type: Spontaneous
  Country: KR (occurrence: KR)
  Receive Date: 20190603
  Receipt Date: 20190603
  Transmission Date: 20190711
  Serious: Yes (Death)
  Sender: FDA-Public Use
  Company Number: KR-ASTRAZENECA-2019SE80840

PATIENT
  Sex: Female

DRUGS (8)
  1. PACLITAXEL. [Concomitant]
     Active Substance: PACLITAXEL
     Dates: start: 20180309, end: 20180621
  2. GEMCITABINE [Concomitant]
     Active Substance: GEMCITABINE\GEMCITABINE HYDROCHLORIDE
     Dates: start: 20190306
  3. AFINITOR [Concomitant]
     Active Substance: EVEROLIMUS
     Dates: start: 20170908, end: 20180228
  4. XELODA [Concomitant]
     Active Substance: CAPECITABINE
     Dates: start: 20180713, end: 20181113
  5. ERIBULIN [Concomitant]
     Active Substance: ERIBULIN
     Dates: start: 20181130, end: 20190108
  6. LETROZOLE. [Concomitant]
     Active Substance: LETROZOLE
     Dates: start: 20150824, end: 20170907
  7. AROMASIN [Concomitant]
     Active Substance: EXEMESTANE
     Dates: start: 20170908, end: 20180228
  8. FASLODEX [Suspect]
     Active Substance: FULVESTRANT
     Indication: BREAST CANCER FEMALE
     Route: 030

REACTIONS (1)
  - Multiple organ dysfunction syndrome [Fatal]
